FAERS Safety Report 20333239 (Version 1)
Quarter: 2022Q1

REPORT INFORMATION
  Report Type: Spontaneous
  Country: US (occurrence: None)
  Receive Date: 20220113
  Receipt Date: 20220113
  Transmission Date: 20220423
  Serious: Yes (Death)
  Sender: FDA-Public Use
  Company Number: None

PATIENT
  Age: 38 Year
  Sex: Female

DRUGS (2)
  1. CAPECITABINE [Suspect]
     Active Substance: CAPECITABINE
     Indication: Breast cancer
     Dosage: OTHER FREQUENCY : AM 14 ON 7 OFF;?
     Route: 048
     Dates: start: 20211216, end: 20220112
  2. CAPECITABINE [Suspect]
     Active Substance: CAPECITABINE
     Dosage: OTHER FREQUENCY : PM 14 ON 7 OFF;?
     Route: 048
     Dates: start: 20211216, end: 20220112

REACTIONS (1)
  - Death [None]

NARRATIVE: CASE EVENT DATE: 20220112
